FAERS Safety Report 19097970 (Version 1)
Quarter: 2021Q2

REPORT INFORMATION
  Report Type: Spontaneous
  Country: CA (occurrence: CA)
  Receive Date: 20210406
  Receipt Date: 20210406
  Transmission Date: 20210717
  Serious: Yes (Disabling)
  Sender: FDA-Public Use
  Company Number: NVSC2021CA075601

PATIENT
  Age: 58 Year
  Sex: Female
  Weight: 100 kg

DRUGS (4)
  1. TYLENOL [Concomitant]
     Active Substance: ACETAMINOPHEN
     Indication: PRODUCT USED FOR UNKNOWN INDICATION
     Dosage: ELIXIR
     Route: 065
  2. TELMISARTAN TEVA [Suspect]
     Active Substance: TELMISARTAN
     Indication: HYPERTENSION
     Dosage: 80 MG, QD (1 EVERY 1 DAYS)
     Route: 048
  3. IBUPROFEN. [Concomitant]
     Active Substance: IBUPROFEN
     Indication: PRODUCT USED FOR UNKNOWN INDICATION
     Dosage: UNK
     Route: 065
  4. SANDOZ TELMISARTAN [Suspect]
     Active Substance: TELMISARTAN
     Indication: HYPERTENSION
     Dosage: 80 MG, QD (1 EVERY 1 DAYS)
     Route: 048

REACTIONS (3)
  - Aphasia [Recovered/Resolved]
  - Memory impairment [Recovered/Resolved]
  - Amnesia [Recovered/Resolved]
